FAERS Safety Report 8107406-8 (Version None)
Quarter: 2012Q1

REPORT INFORMATION
  Report Type: 
  Country: None (occurrence: None)
  Receive Date: 20120202
  Receipt Date: 20120131
  Transmission Date: 20120608
  Serious: Yes (Death, Hospitalization)
  Sender: FDA-Public Use
  Company Number: US-PFIZER INC-2011308454

PATIENT
  Age: 31 Year
  Sex: Female

DRUGS (4)
  1. DILTIAZEM HCL [Suspect]
     Dosage: 120 MG, 20 TABS
     Route: 048
  2. AMIODARONE HCL [Suspect]
     Dosage: 200 MG, 10 TABS
     Route: 048
  3. METOPROLOL [Suspect]
     Dosage: 50 MG, 10 TABS
     Route: 048
  4. LISINOPRIL [Suspect]
     Dosage: 2.5 MG, 10 TABS
     Route: 048

REACTIONS (1)
  - COMPLETED SUICIDE [None]
